FAERS Safety Report 5912420-4 (Version None)
Quarter: 2008Q4

REPORT INFORMATION
  Report Type: 
  Country: None (occurrence: None)
  Receive Date: 20081007
  Receipt Date: 20081007
  Transmission Date: 20090506
  Serious: Yes (Hospitalization)
  Sender: FDA-Public Use
  Company Number: None

PATIENT
  Sex: Male
  Weight: 99 kg

DRUGS (1)
  1. CISPLATIN [Suspect]
     Dosage: 200 MG
     Dates: end: 20080908

REACTIONS (3)
  - BACTERIAL INFECTION [None]
  - CATHETER RELATED INFECTION [None]
  - NEUTROPHIL COUNT DECREASED [None]
